FAERS Safety Report 9522101 (Version 2)
Quarter: 2013Q4

REPORT INFORMATION
  Report Type: Spontaneous
  Country: US (occurrence: US)
  Receive Date: 20130913
  Receipt Date: 20131219
  Transmission Date: 20140711
  Serious: Yes (Hospitalization, Other)
  Sender: FDA-Public Use
  Company Number: US-ASTRAZENECA-2013SE67980

PATIENT
  Age: 64 Year
  Sex: Female
  Weight: 68.5 kg

DRUGS (8)
  1. NEXIUM [Suspect]
     Indication: DYSPEPSIA
     Route: 048
     Dates: start: 2010
  2. NEXIUM [Suspect]
     Indication: GASTROOESOPHAGEAL REFLUX DISEASE
     Route: 048
     Dates: start: 2010
  3. VIMOVO [Suspect]
     Indication: ARTHRITIS
     Dosage: 500/20MG DAILY
     Route: 048
     Dates: start: 201111
  4. VIMOVO [Suspect]
     Indication: CARPAL TUNNEL SYNDROME
     Dosage: 500/20MG DAILY
     Route: 048
     Dates: start: 201111
  5. TAKING OTHER THINGS FOR YEARS [Concomitant]
  6. CYMBALTA [Concomitant]
     Indication: DYSPEPSIA
  7. CYMBALTA [Concomitant]
     Indication: GASTROOESOPHAGEAL REFLUX DISEASE
  8. PROZAC [Concomitant]
     Indication: MAJOR DEPRESSION

REACTIONS (18)
  - Gastrointestinal disorder [Unknown]
  - Skin odour abnormal [Unknown]
  - Gastrointestinal gangrene [Recovered/Resolved with Sequelae]
  - Rectal haemorrhage [Recovered/Resolved]
  - Carpal tunnel syndrome [Unknown]
  - Speech disorder [Unknown]
  - Crohn^s disease [Not Recovered/Not Resolved]
  - Dyspepsia [Unknown]
  - Fall [Recovered/Resolved]
  - Grip strength decreased [Unknown]
  - Bursitis [Unknown]
  - Bursitis [Unknown]
  - Tendonitis [Unknown]
  - Activities of daily living impaired [Unknown]
  - Eating disorder symptom [Recovered/Resolved]
  - Wrong drug administered [Unknown]
  - Intentional drug misuse [Unknown]
  - Off label use [Recovered/Resolved]
